FAERS Safety Report 20517882 (Version 1)
Quarter: 2022Q1

REPORT INFORMATION
  Report Type: Spontaneous
  Country: US (occurrence: US)
  Receive Date: 20220225
  Receipt Date: 20220225
  Transmission Date: 20220423
  Serious: No
  Sender: FDA-Public Use
  Company Number: US-BAYER-2022A028865

PATIENT
  Age: 67 Year

DRUGS (4)
  1. ALEVE [Suspect]
     Active Substance: NAPROXEN SODIUM
     Indication: Pain
     Dosage: UNK
     Route: 048
     Dates: start: 20220224, end: 20220224
  2. THIAMINE HYDROCHLORIDE [Concomitant]
     Active Substance: THIAMINE HYDROCHLORIDE
  3. FOLIC ACID [Concomitant]
     Active Substance: FOLIC ACID
  4. CALCIUM ASCORBATE;CALCIUM PANTOTHENATE;CYSTEINE [Concomitant]

REACTIONS (2)
  - Drug ineffective [Unknown]
  - Product use complaint [Unknown]
